FAERS Safety Report 9455994 (Version 1)
Quarter: 2013Q3

REPORT INFORMATION
  Report Type: Spontaneous
  Country: US (occurrence: US)
  Receive Date: 20130813
  Receipt Date: 20130813
  Transmission Date: 20140515
  Serious: No
  Sender: FDA-Public Use
  Company Number: US-009507513-1308USA004317

PATIENT
  Age: 54 Year
  Sex: Female
  Weight: 46.26 kg

DRUGS (25)
  1. MIRALAX [Suspect]
     Indication: OBSTRUCTION
     Dosage: 34 G, PRN
     Route: 048
     Dates: start: 2000
  2. MIRALAX [Suspect]
     Indication: GASTROENTERITIS RADIATION
  3. MIRALAX [Suspect]
     Indication: INTESTINAL RESECTION
  4. MIRALAX [Suspect]
     Indication: MEDICAL OBSERVATION
  5. ANTINEOPLASTIC (UNSPECIFIED) [Concomitant]
     Indication: OVARIAN CANCER STAGE IV
     Dosage: UNK, UNKNOWN
  6. BENTYL [Concomitant]
     Indication: GASTROENTERITIS RADIATION
     Dosage: UNK, UNKNOWN
  7. BENTYL [Concomitant]
     Indication: OBSTRUCTION
  8. METHADONE HYDROCHLORIDE [Concomitant]
     Indication: GASTROENTERITIS RADIATION
     Dosage: UNK, UNKNOWN
  9. METHADONE HYDROCHLORIDE [Concomitant]
     Indication: OBSTRUCTION
  10. LINZESS [Concomitant]
     Indication: GASTROENTERITIS RADIATION
     Dosage: UNK, UNKNOWN
  11. LINZESS [Concomitant]
     Indication: OBSTRUCTION
  12. ZENPEP [Concomitant]
     Indication: GASTROENTERITIS RADIATION
     Dosage: UNK, UNKNOWN
  13. ZENPEP [Concomitant]
     Indication: OBSTRUCTION
  14. ACIDOPHILUS [Concomitant]
     Indication: GASTROENTERITIS RADIATION
     Dosage: UNK, UNKNOWN
  15. ACIDOPHILUS [Concomitant]
     Indication: OBSTRUCTION
  16. ZOFRAN [Concomitant]
     Indication: GASTROENTERITIS RADIATION
     Dosage: UNK, UNKNOWN
  17. ZOFRAN [Concomitant]
     Indication: OBSTRUCTION
  18. LYRICA [Concomitant]
     Indication: NEUROPATHY PERIPHERAL
     Dosage: UNK, UNKNOWN
  19. LIDODERM [Concomitant]
     Indication: NEUROPATHY PERIPHERAL
     Dosage: UNK, UNKNOWN
  20. PLAVIX [Concomitant]
     Indication: PERIPHERAL ARTERIAL OCCLUSIVE DISEASE
     Dosage: UNK, UNKNOWN
  21. PLAVIX [Concomitant]
     Indication: VENOUS INSUFFICIENCY
  22. ZOCOR [Concomitant]
     Indication: PERIPHERAL ARTERIAL OCCLUSIVE DISEASE
     Dosage: UNK, UNKNOWN
  23. ZOCOR [Concomitant]
     Indication: VENOUS INSUFFICIENCY
  24. ASPIRIN [Concomitant]
     Indication: PERIPHERAL ARTERIAL OCCLUSIVE DISEASE
     Dosage: UNK, UNKNOWN
  25. ASPIRIN [Concomitant]
     Indication: VENOUS INSUFFICIENCY

REACTIONS (4)
  - Overdose [Unknown]
  - Inappropriate schedule of drug administration [Unknown]
  - Off label use [Unknown]
  - Product contamination physical [Unknown]
